FAERS Safety Report 21880756 (Version 1)
Quarter: 2023Q1

REPORT INFORMATION
  Report Type: Spontaneous
  Country: IT (occurrence: IT)
  Receive Date: 20230118
  Receipt Date: 20230118
  Transmission Date: 20230417
  Serious: Yes (Other)
  Sender: FDA-Public Use
  Company Number: None

PATIENT
  Age: 62 Year
  Sex: Female
  Weight: 60 kg

DRUGS (6)
  1. PACLITAXEL [Suspect]
     Active Substance: PACLITAXEL
     Indication: Breast cancer
     Dosage: 120 MG PER 60 MINUTE
     Route: 042
     Dates: start: 20221108, end: 20221201
  2. TRASTUZUMAB [Suspect]
     Active Substance: TRASTUZUMAB
     Indication: Breast cancer
     Dosage: FREQUENZA SETTIMANALE, PER 12 SOMMINISTRAZIONI.
     Route: 042
     Dates: start: 20221108, end: 20221201
  3. FAMOTIDINA [Concomitant]
     Indication: Ulcer
     Dosage: 20MG PER 20 MINUTI
     Route: 042
     Dates: start: 20221108, end: 20221201
  4. ONDANSETRON [Concomitant]
     Active Substance: ONDANSETRON
     Indication: Nausea
     Dosage: 8MG PER 15 MINUTI
     Route: 042
     Dates: start: 20221108, end: 20221201
  5. DEXAMETHASONE [Concomitant]
     Active Substance: DEXAMETHASONE
     Indication: Drug hypersensitivity
     Dosage: 10MG PER 15 MINUTI
     Route: 042
     Dates: start: 20221108, end: 20221201
  6. TRIMETON [Concomitant]
     Active Substance: CHLORPHENIRAMINE MALEATE
     Indication: Drug hypersensitivity
     Dosage: 10MG PER 15 MINUTI
     Route: 042
     Dates: start: 20221108, end: 20221201

REACTIONS (5)
  - Leukopenia [Recovering/Resolving]
  - Neutropenia [Recovering/Resolving]
  - Gingival pain [Recovering/Resolving]
  - Feeling cold [Not Recovered/Not Resolved]
  - Nausea [Recovering/Resolving]

NARRATIVE: CASE EVENT DATE: 20221121
